FAERS Safety Report 4314262-2 (Version None)
Quarter: 2004Q1

REPORT INFORMATION
  Report Type: 
  Country: None (occurrence: None)
  Receive Date: 20040308
  Receipt Date: 20040302
  Transmission Date: 20041129
  Serious: Yes (Death, Hospitalization)
  Sender: FDA-Public Use
  Company Number: 2004UW03760

PATIENT
  Sex: Male

DRUGS (2)
  1. DIPRIVAN [Suspect]
     Indication: SEDATION
     Dosage: 100 MCG/KG/MIN
  2. UNSPECIFIED MEDICATIONS [Concomitant]

REACTIONS (4)
  - CARDIAC ARREST [None]
  - HYPERTRIGLYCERIDAEMIA [None]
  - METABOLIC ACIDOSIS [None]
  - RENAL IMPAIRMENT [None]
